FAERS Safety Report 19713762 (Version 1)
Quarter: 2021Q3

REPORT INFORMATION
  Report Type: Spontaneous
  Country: US (occurrence: US)
  Receive Date: 20210817
  Receipt Date: 20210817
  Transmission Date: 20211014
  Serious: Yes (Life-Threatening, Other)
  Sender: FDA-Public Use
  Company Number: None

PATIENT
  Sex: Female
  Weight: 88.45 kg

DRUGS (11)
  1. ATORVASTATIN [Concomitant]
     Active Substance: ATORVASTATIN
     Dates: start: 20210817
  2. ENOXAPARI N [Concomitant]
     Active Substance: ENOXAPARIN
     Dates: start: 20210816
  3. WARFARIN [Concomitant]
     Active Substance: WARFARIN
     Dates: start: 20210817
  4. FUROSEMIDE. [Concomitant]
     Active Substance: FUROSEMIDE
     Dates: start: 20210817
  5. LEVOTHYROXINE. [Concomitant]
     Active Substance: LEVOTHYROXINE
  6. MONTELUKAST [Concomitant]
     Active Substance: MONTELUKAST SODIUM
     Dates: start: 20210816
  7. REGEN?COV [Suspect]
     Active Substance: CASIRIVIMAB\IMDEVIMAB
     Indication: COVID-19
     Dates: start: 20210816, end: 20210816
  8. PANTOPRAZOLE [Concomitant]
     Active Substance: PANTOPRAZOLE
  9. DEXAMETHASONE. [Concomitant]
     Active Substance: DEXAMETHASONE
     Dates: start: 20210817
  10. INSULIN LISPRO [Concomitant]
     Active Substance: INSULIN LISPRO
  11. MIRABEGRON [Concomitant]
     Active Substance: MIRABEGRON
     Dates: start: 20210817

REACTIONS (2)
  - Unresponsive to stimuli [None]
  - Wheezing [None]

NARRATIVE: CASE EVENT DATE: 20210817
